FAERS Safety Report 9341777 (Version 3)
Quarter: 2013Q3

REPORT INFORMATION
  Report Type: Spontaneous
  Country: JP (occurrence: JP)
  Receive Date: 20130611
  Receipt Date: 20130719
  Transmission Date: 20140515
  Serious: Yes (Hospitalization)
  Sender: FDA-Public Use
  Company Number: JP-TEVA-411322USA

PATIENT
  Age: 71 Year
  Sex: Female
  Weight: 64 kg

DRUGS (17)
  1. BENDAMUSTINE [Suspect]
     Indication: MANTLE CELL LYMPHOMA
     Dosage: UID/QD
     Route: 042
     Dates: start: 20130514, end: 20130515
  2. BENDAMUSTINE [Suspect]
     Dosage: UID/QD
     Route: 042
     Dates: start: 20130612, end: 20130613
  3. BENDAMUSTINE [Suspect]
     Dosage: UID/QD
     Route: 042
     Dates: start: 20130710, end: 20130711
  4. BENDAMUSTINE [Suspect]
     Dosage: UID/QD
     Route: 042
     Dates: start: 20130807, end: 20130808
  5. MAGNESIUM OXIDE [Suspect]
     Indication: CONSTIPATION PROPHYLAXIS
     Route: 048
     Dates: start: 20130514, end: 20130522
  6. RITUXIMAB [Suspect]
     Indication: MANTLE CELL LYMPHOMA
     Route: 042
     Dates: start: 20130514
  7. RITUXIMAB [Suspect]
     Route: 042
     Dates: start: 20130613
  8. GRANISETRON HYDROCHLORIDE [Concomitant]
     Indication: PROPHYLAXIS OF NAUSEA AND VOMITING
     Dosage: MG/BODY/DAY
     Dates: start: 20130514, end: 20130515
  9. DEXAMETHASONE SODIUM PHOSPHATE [Concomitant]
     Indication: PROPHYLAXIS OF NAUSEA AND VOMITING
     Dosage: MG/BODY/DAY
     Dates: start: 20130514, end: 20130515
  10. ISOTONIC SODIUM CHLORIDE SOLUTION [Concomitant]
     Indication: FLUSHING
     Dosage: MG/BODY/DAY
     Dates: start: 20130514
  11. FUROSEMIDE [Concomitant]
     Indication: POLYURIA
     Dosage: 10 MILLIGRAM DAILY;
     Dates: start: 20130516
  12. LANSOPRAZOLE [Concomitant]
     Indication: ABDOMINAL PAIN UPPER
     Dosage: 15 MILLIGRAM DAILY;
  13. SULFAMETHOXAZOLE W/TRIMETHOPRIM [Concomitant]
     Indication: PROPHYLAXIS
     Dosage: 1 DOSAGE FORMS DAILY;
     Dates: start: 20130514
  14. ACYCLOVIR [Concomitant]
     Indication: PROPHYLAXIS
     Dosage: 200 MILLIGRAM DAILY;
     Dates: start: 20130514
  15. CANDESARTAN CILEXETIL [Concomitant]
     Indication: HYPERTENSION
     Dosage: 8 MILLIGRAM DAILY;
  16. IBUPROFEN [Concomitant]
     Dosage: 200 MILLIGRAM DAILY;
     Dates: start: 20130514
  17. D-CHLORPHENIRAMINE MALEATE [Concomitant]
     Dosage: 2 MILLIGRAM DAILY;
     Dates: start: 20130514

REACTIONS (3)
  - Hyperkalaemia [Recovered/Resolved]
  - Hypermagnesaemia [Recovered/Resolved]
  - Blood creatinine increased [Not Recovered/Not Resolved]
